APPROVED DRUG PRODUCT: SORBITRATE
Active Ingredient: ISOSORBIDE DINITRATE
Strength: 40MG
Dosage Form/Route: TABLET;ORAL
Application: A088125 | Product #001
Applicant: ASTRAZENECA PHARMACEUTICALS LP
Approved: Aug 21, 1990 | RLD: No | RS: No | Type: DISCN